FAERS Safety Report 8102646 (Version 3)
Quarter: 2014Q3

REPORT INFORMATION
  Report Type: Spontaneous
  Country: US (occurrence: US)
  Receive Date: 20110823
  Receipt Date: 20140730
  Transmission Date: 20150326
  Serious: Yes (Hospitalization)
  Sender: FDA-Public Use
  Company Number: US-GLAXOSMITHKLINE-B0741523A

PATIENT
  Sex: Male
  Weight: 40.7 kg

DRUGS (2)
  1. ROSIGLITAZONE MALEATE. [Suspect]
     Active Substance: ROSIGLITAZONE MALEATE
     Indication: DIABETES MELLITUS
     Dosage: 8MG PER DAY
     Dates: start: 20030113, end: 20110206
  2. AVANDIA [Suspect]
     Active Substance: ROSIGLITAZONE MALEATE
     Indication: DIABETES MELLITUS
     Dosage: 4MG TWICE PER DAY
     Route: 048
     Dates: start: 200303, end: 201007

REACTIONS (6)
  - Cardiac failure congestive [Unknown]
  - Transfusion [Unknown]
  - Myocardial infarction [Not Recovered/Not Resolved]
  - Pneumonia [Unknown]
  - Cardiopulmonary failure [Unknown]
  - Anaemia [Unknown]
